FAERS Safety Report 14467710 (Version 3)
Quarter: 2018Q1

REPORT INFORMATION
  Report Type: Spontaneous
  Country: US (occurrence: US)
  Receive Date: 20180131
  Receipt Date: 20180309
  Transmission Date: 20180509
  Serious: Yes (Other)
  Sender: FDA-Public Use
  Company Number: US-009507513-1801USA002848

PATIENT
  Age: 62 Year
  Sex: Female

DRUGS (1)
  1. KEYTRUDA [Suspect]
     Active Substance: PEMBROLIZUMAB
     Indication: CHEMOTHERAPY
     Dosage: UNK
     Route: 041
     Dates: start: 201510, end: 201704

REACTIONS (9)
  - Pneumonia [Recovered/Resolved]
  - Increased appetite [Unknown]
  - Fatigue [Not Recovered/Not Resolved]
  - Eye disorder [Unknown]
  - Onychoclasis [Unknown]
  - Dyspnoea [Not Recovered/Not Resolved]
  - Eye discharge [Not Recovered/Not Resolved]
  - Feeling hot [Unknown]
  - Blood pressure increased [Unknown]

NARRATIVE: CASE EVENT DATE: 201510
